FAERS Safety Report 14857067 (Version 2)
Quarter: 2018Q2

REPORT INFORMATION
  Report Type: Report from Study
  Country: US (occurrence: US)
  Receive Date: 20180507
  Receipt Date: 20180613
  Transmission Date: 20180711
  Serious: No
  Sender: FDA-Public Use
  Company Number: PHEH2018US017412

PATIENT
  Weight: 62.59 kg

DRUGS (1)
  1. GILENYA [Suspect]
     Active Substance: FINGOLIMOD HYDROCHLORIDE
     Indication: PRODUCT USED FOR UNKNOWN INDICATION
     Dosage: 0.5 MG, QOD (EVERY 48 HOURS)
     Route: 048

REACTIONS (3)
  - Inappropriate schedule of drug administration [Unknown]
  - Intentional product misuse [Unknown]
  - Lip swelling [Unknown]
